FAERS Safety Report 9175410 (Version 1)
Quarter: 2013Q1

REPORT INFORMATION
  Report Type: Spontaneous
  Country: US (occurrence: US)
  Receive Date: 20130320
  Receipt Date: 20130320
  Transmission Date: 20140127
  Serious: Yes (Death)
  Sender: FDA-Public Use
  Company Number: PHEH2013US006378

PATIENT
  Age: 69 Year
  Sex: Female

DRUGS (1)
  1. AFINITOR [Suspect]
     Indication: RENAL CANCER METASTATIC
     Dosage: 10 MG, QD
     Route: 048
     Dates: start: 201205

REACTIONS (1)
  - Death [Fatal]
